FAERS Safety Report 24259453 (Version 4)
Quarter: 2025Q2

REPORT INFORMATION
  Report Type: Report from Study
  Country: US (occurrence: US)
  Receive Date: 20240828
  Receipt Date: 20250620
  Transmission Date: 20250716
  Serious: Yes (Hospitalization, Other)
  Sender: SUNOVION
  Company Number: US-SUMITOMO PHARMA SWITZERLAND GMBH-2024SPA001507

PATIENT

DRUGS (3)
  1. ORGOVYX [Suspect]
     Active Substance: RELUGOLIX
     Indication: Prostate cancer
     Dosage: 120 MG, QD
     Route: 048
     Dates: start: 20240820
  2. ERLEADA [Concomitant]
     Active Substance: APALUTAMIDE
     Route: 065
  3. BICALUTAMIDE [Concomitant]
     Active Substance: BICALUTAMIDE
     Route: 065

REACTIONS (5)
  - Blood potassium increased [Unknown]
  - Diabetes mellitus [Unknown]
  - Blood pressure abnormal [Unknown]
  - Blood pressure decreased [Unknown]
  - Incorrect dose administered [Unknown]
